FAERS Safety Report 26019360 (Version 1)
Quarter: 2025Q4

REPORT INFORMATION
  Report Type: Spontaneous
  Country: JP (occurrence: JP)
  Receive Date: 20251110
  Receipt Date: 20251110
  Transmission Date: 20260117
  Serious: Yes (Disabling, Other)
  Sender: ROCHE
  Company Number: JP-CHUGAI-2025017635

PATIENT
  Age: 84 Year
  Sex: Male
  Weight: 60 kg

DRUGS (14)
  1. POLIVY [Suspect]
     Active Substance: POLATUZUMAB VEDOTIN-PIIQ
     Indication: Diffuse large B-cell lymphoma
     Dosage: 120 MILLIGRAM, ONCE/3WEEKS
     Route: 042
     Dates: start: 20250408, end: 20250502
  2. RITUXIMAB [Suspect]
     Active Substance: RITUXIMAB
     Indication: Diffuse large B-cell lymphoma
     Dosage: 650 MILLIGRAM, ONCE/3WEEKS
     Route: 042
     Dates: start: 20250326, end: 20250507
  3. DOXORUBICIN HYDROCHLORIDE [Suspect]
     Active Substance: DOXORUBICIN HYDROCHLORIDE
     Indication: Diffuse large B-cell lymphoma
     Dosage: 60 MILLIGRAM, ONCE/3WEEKS
     Route: 042
     Dates: start: 20250320, end: 20250502
  4. CYCLOPHOSPHAMIDE [Suspect]
     Active Substance: CYCLOPHOSPHAMIDE
     Indication: Diffuse large B-cell lymphoma
     Dosage: 900 MILLIGRAM, ONCE/3WEEKS
     Route: 042
     Dates: start: 20250318, end: 20250502
  5. PREDONINE [Suspect]
     Active Substance: PREDNISOLONE
     Indication: Diffuse large B-cell lymphoma
     Dosage: 30 MILLIGRAM, ONCE/3WEEKS
     Route: 048
     Dates: start: 20250314, end: 20250502
  6. SOLU-MEDROL [Suspect]
     Active Substance: METHYLPREDNISOLONE SODIUM SUCCINATE
     Indication: Product used for unknown indication
     Dosage: 20MG/DAY
     Route: 042
     Dates: start: 20250326, end: 20250502
  7. GRANISETRON HYDROCHLORIDE [Concomitant]
     Active Substance: GRANISETRON HYDROCHLORIDE
     Dosage: UNK
     Route: 042
     Dates: start: 20250318, end: 20250502
  8. ACETAMINOPHEN [Concomitant]
     Active Substance: ACETAMINOPHEN
     Dosage: UNK
     Route: 065
     Dates: start: 20250326, end: 20250507
  9. POLARAMINE [Concomitant]
     Active Substance: DEXCHLORPHENIRAMINE MALEATE
     Dosage: UNK
     Route: 065
     Dates: start: 20250326, end: 20250507
  10. ATOVAQUONE [Concomitant]
     Active Substance: ATOVAQUONE
     Dosage: UNK
     Route: 050
     Dates: start: 20250411, end: 20250522
  11. LEVOFLOXACIN HEMIHYDRATE [Concomitant]
     Active Substance: LEVOFLOXACIN
     Dosage: UNK
     Route: 048
     Dates: start: 20250401, end: 20250522
  12. FLUCONAZOLE [Concomitant]
     Active Substance: FLUCONAZOLE
     Dosage: UNK
     Route: 048
     Dates: start: 20250320, end: 20250522
  13. MAGNESIUM OXIDE [Concomitant]
     Active Substance: MAGNESIUM OXIDE
     Dosage: UNK
     Route: 048
     Dates: start: 20250319, end: 20250522
  14. FEBUXOSTAT [Concomitant]
     Active Substance: FEBUXOSTAT
     Dosage: UNK
     Route: 048
     Dates: start: 20250312, end: 20250522

REACTIONS (3)
  - Epilepsy [Unknown]
  - Encephalitis herpes [Recovered/Resolved with Sequelae]
  - Varicella zoster virus infection [Unknown]

NARRATIVE: CASE EVENT DATE: 20250501
